FAERS Safety Report 11294416 (Version 1)
Quarter: 2015Q3

REPORT INFORMATION
  Report Type: Spontaneous
  Country: US (occurrence: US)
  Receive Date: 20150722
  Receipt Date: 20150722
  Transmission Date: 20151125
  Serious: No
  Sender: FDA-Public Use
  Company Number: US-ELI_LILLY_AND_COMPANY-US200807001510

PATIENT
  Sex: Female

DRUGS (1)
  1. EVISTA [Suspect]
     Active Substance: RALOXIFENE HYDROCHLORIDE
     Dosage: 60 MG, UNK

REACTIONS (4)
  - Burning sensation [Not Recovered/Not Resolved]
  - Ecchymosis [Not Recovered/Not Resolved]
  - Vascular injury [Unknown]
  - Muscle spasms [Not Recovered/Not Resolved]
